FAERS Safety Report 23840954 (Version 1)
Quarter: 2024Q2

REPORT INFORMATION
  Report Type: Report from Study
  Country: US (occurrence: US)
  Receive Date: 20240510
  Receipt Date: 20240510
  Transmission Date: 20240715
  Serious: No
  Sender: FDA-Public Use
  Company Number: US-ACADIA PHARMACEUTICALS INC.-ACA-2024-PIM-001984

PATIENT
  Sex: Female

DRUGS (18)
  1. NUPLAZID [Suspect]
     Active Substance: PIMAVANSERIN TARTRATE
     Indication: Parkinson^s disease
     Dosage: 34 MILLIGRAM, QD
     Route: 048
     Dates: start: 202305
  2. ELIQUIS [Concomitant]
     Active Substance: APIXABAN
  3. REFRESH OPTIVE [Concomitant]
     Active Substance: CARBOXYMETHYLCELLULOSE SODIUM\GLYCERIN
  4. ATORVASTATIN [Concomitant]
     Active Substance: ATORVASTATIN
  5. CARBIDOPA [Concomitant]
     Active Substance: CARBIDOPA
  6. BREZTRI [Concomitant]
     Active Substance: BUDESONIDE\FORMOTEROL\GLYCOPYRROLATE
  7. ASPIRIN [Concomitant]
     Active Substance: ASPIRIN
  8. FOLIC ACID [Concomitant]
     Active Substance: FOLIC ACID
  9. MINERALS\VITAMINS [Concomitant]
     Active Substance: MINERALS\VITAMINS
  10. TORSEMIDE [Concomitant]
     Active Substance: TORSEMIDE
  11. CHOLECALCIFEROL [Concomitant]
     Active Substance: CHOLECALCIFEROL
  12. DONEPEZIL [Concomitant]
     Active Substance: DONEPEZIL
  13. LOSARTAN [Concomitant]
     Active Substance: LOSARTAN
  14. CARVEDILOL [Concomitant]
     Active Substance: CARVEDILOL
  15. TRAZODONE [Concomitant]
     Active Substance: TRAZODONE HYDROCHLORIDE
  16. AMLODIPINE [Concomitant]
     Active Substance: AMLODIPINE BESYLATE
  17. ESCITALOPRAM [Concomitant]
     Active Substance: ESCITALOPRAM OXALATE
  18. OLANZAPINE [Concomitant]
     Active Substance: OLANZAPINE
     Dosage: UNK

REACTIONS (2)
  - Joint stiffness [Unknown]
  - Gait disturbance [Unknown]
